FAERS Safety Report 7331591-9 (Version None)
Quarter: 2011Q1

REPORT INFORMATION
  Report Type: 
  Country: None (occurrence: None)
  Receive Date: 20110304
  Receipt Date: 20110104
  Transmission Date: 20110831
  Serious: Yes (Other)
  Sender: FDA-Public Use
  Company Number: A0902844A

PATIENT

DRUGS (2)
  1. LAMOTRIGINE [Suspect]
     Route: 065
  2. OTHER MEDICATIONS [Concomitant]

REACTIONS (1)
  - MENINGITIS ASEPTIC [None]
